FAERS Safety Report 10234821 (Version 1)
Quarter: 2014Q1

REPORT INFORMATION
  Report Type: Spontaneous
  Country: US (occurrence: None)
  Receive Date: 20140306
  Receipt Date: 20140306
  Transmission Date: 20141002
  Serious: Yes (Other)
  Sender: FDA-Public Use
  Company Number: 163-21880-13043801

PATIENT
  Age: 52 Year
  Sex: Male
  Weight: 79.38 kg

DRUGS (4)
  1. REVLIMID (LENALIDOMIDE) (10 MILLIGRAM, CAPSULES) [Suspect]
     Indication: PLASMA CELL MYELOMA
     Route: 048
     Dates: start: 201112
  2. LISINOPRIL (LISINOPRIL) (TABLETS) [Concomitant]
  3. CENTRUM (CENTRUM) (TABLETS) [Concomitant]
  4. WARFARIN (WARFARIN) [Concomitant]

REACTIONS (1)
  - Deep vein thrombosis [None]
